FAERS Safety Report 6065030-5 (Version None)
Quarter: 2009Q1

REPORT INFORMATION
  Report Type: 
  Country: None (occurrence: None)
  Receive Date: 20090204
  Receipt Date: 20090126
  Transmission Date: 20090719
  Serious: Yes (Hospitalization, Other)
  Sender: FDA-Public Use
  Company Number: CA-ROCHE-610789

PATIENT
  Age: 16 Month
  Sex: Male

DRUGS (2)
  1. NAPROXEN [Suspect]
     Route: 065
  2. TRIAMCINOLONE HEXACETONIDE [Suspect]
     Route: 065

REACTIONS (4)
  - FAECES DISCOLOURED [None]
  - HYPOALBUMINAEMIA [None]
  - IRON DEFICIENCY ANAEMIA [None]
  - OEDEMA [None]
